FAERS Safety Report 9688819 (Version 2)
Quarter: 2013Q4

REPORT INFORMATION
  Report Type: Spontaneous
  Country: US (occurrence: None)
  Receive Date: 20131113
  Receipt Date: 20131125
  Transmission Date: 20140711
  Serious: Yes (Death)
  Sender: FDA-Public Use
  Company Number: UTC-040398

PATIENT
  Age: 74 Year
  Sex: Female
  Weight: 81.8 kg

DRUGS (1)
  1. REMODULIN [Suspect]
     Indication: COR PULMONALE CHRONIC
     Dosage: 86.4 UG/KG (0.06 UG/KG,1 IN 1 MIN),INTRAVENOUS DRIP
     Route: 041
     Dates: start: 20071102

REACTIONS (1)
  - Death [None]
